FAERS Safety Report 5598022-0 (Version None)
Quarter: 2008Q1

REPORT INFORMATION
  Report Type: 
  Country: None (occurrence: None)
  Receive Date: 20080122
  Receipt Date: 20080116
  Transmission Date: 20080703
  Serious: Yes (Congenital Anomaly)
  Sender: FDA-Public Use
  Company Number: FR-JNJFOC-20080103678

PATIENT
  Sex: Female
  Weight: 0.45 kg

DRUGS (3)
  1. EPITOMAX [Suspect]
     Indication: DRUG EXPOSURE DURING PREGNANCY
  2. DEPAKENE [Suspect]
     Indication: DRUG EXPOSURE DURING PREGNANCY
  3. FOLIC ACID [Concomitant]
     Indication: DRUG EXPOSURE DURING PREGNANCY

REACTIONS (2)
  - ARNOLD-CHIARI MALFORMATION [None]
  - MENINGOMYELOCELE [None]
